FAERS Safety Report 25921794 (Version 1)
Quarter: 2025Q4

REPORT INFORMATION
  Report Type: Spontaneous
  Country: GB (occurrence: GB)
  Receive Date: 20251014
  Receipt Date: 20251014
  Transmission Date: 20260118
  Serious: Yes (Other)
  Sender: BAUSCH AND LOMB
  Company Number: GB-STEMLINETHERAPEUTICSINC-2025-STML-GB003090

PATIENT
  Age: 77 Year
  Sex: Female

DRUGS (6)
  1. DEXAMETHASONE [Suspect]
     Active Substance: DEXAMETHASONE
     Indication: Plasma cell myeloma
     Dosage: UNK UNK, 2/WEEK
     Dates: start: 20241205
  2. DEXAMETHASONE [Suspect]
     Active Substance: DEXAMETHASONE
     Dosage: UNK UNK, 2/WEEK (DOSE REDUCED))
     Dates: end: 20250122
  3. SELINEXOR [Suspect]
     Active Substance: SELINEXOR
     Indication: Plasma cell myeloma
     Dosage: 100 MG, 1/WEEK
     Route: 048
     Dates: start: 20241204
  4. SELINEXOR [Suspect]
     Active Substance: SELINEXOR
     Dosage: UNK (DOSE REDUCED)
     Route: 048
     Dates: end: 20250122
  5. VELCADE [Suspect]
     Active Substance: BORTEZOMIB
     Indication: Plasma cell myeloma
     Dosage: 1 MG/M2, 1/WEEK
     Dates: start: 20241205
  6. VELCADE [Suspect]
     Active Substance: BORTEZOMIB
     Dosage: 0.7 MG/M2 (CYCLE 2 DAY 8 ONWARDS)
     Dates: end: 20250122

REACTIONS (1)
  - Neutropenia [Recovered/Resolved]
